FAERS Safety Report 5490001-7 (Version None)
Quarter: 2007Q4

REPORT INFORMATION
  Report Type: 
  Country: None (occurrence: None)
  Receive Date: 20071018
  Receipt Date: 20071002
  Transmission Date: 20080405
  Serious: Yes (Death)
  Sender: FDA-Public Use
  Company Number: US-GENENTECH-248756

PATIENT
  Sex: Male
  Weight: 75.737 kg

DRUGS (11)
  1. ERLOTINIB [Suspect]
     Indication: NON-SMALL CELL LUNG CANCER
     Dosage: 150 MG, QD
     Route: 048
     Dates: start: 20070201
  2. BEVACIZUMAB [Suspect]
     Indication: NON-SMALL CELL LUNG CANCER
     Dosage: 1200 MG, Q3W
     Route: 042
     Dates: start: 20061108
  3. FENTANYL TRANSDERMAL SYSTEM [Concomitant]
     Indication: PAIN
     Dates: start: 20061027
  4. VICODIN [Concomitant]
     Indication: PAIN
     Dates: start: 20061016
  5. CIALIS [Concomitant]
     Indication: ERECTILE DYSFUNCTION
     Dosage: UNK, UNK
     Dates: start: 20050401
  6. TYLENOL (CAPLET) [Concomitant]
     Indication: PAIN
     Dates: start: 20061016
  7. MULTI-VITAMIN SUPPLEMENT [Concomitant]
     Indication: MEDICAL DIET
     Dates: start: 20050601
  8. GLUCOSAMINE/CHONDROITIN [Concomitant]
     Indication: MEDICAL DIET
     Dosage: UNK, UNK
     Dates: start: 20050601
  9. VITAMIN D [Concomitant]
     Indication: MEDICAL DIET
     Dates: start: 20050601
  10. OMEGA 3 [Concomitant]
     Indication: MEDICAL DIET
     Dates: start: 20050601
  11. MIRALAX [Concomitant]
     Indication: CONSTIPATION
     Dates: start: 20061106

REACTIONS (1)
  - DEATH [None]
